FAERS Safety Report 6659866-7 (Version None)
Quarter: 2010Q1

REPORT INFORMATION
  Report Type: 
  Country: None (occurrence: None)
  Receive Date: 20100330
  Receipt Date: 20100330
  Transmission Date: 20100710
  Serious: Yes (Hospitalization)
  Sender: FDA-Public Use
  Company Number: None

PATIENT
  Age: 71 Year
  Sex: Male

DRUGS (2)
  1. CYCLOBENZAPRINE [Suspect]
     Indication: PAIN
     Dosage: 10 MG PO
     Route: 048
     Dates: end: 20091015
  2. HYDROCODONE BITARTRATE AND ACETAMINOPHEN [Suspect]
     Dosage: 2 TAB PRN PO
     Route: 048
     Dates: start: 20091012, end: 20091015

REACTIONS (2)
  - ANGIOEDEMA [None]
  - RESPIRATORY DEPRESSION [None]
